FAERS Safety Report 7982385 (Version 2)
Quarter: 2012Q4

REPORT INFORMATION
  Report Type: 
  Country: CA (occurrence: CA)
  Receive Date: 20110609
  Receipt Date: 20121109
  Transmission Date: 20130627
  Serious: Yes (Hospitalization)
  Sender: FDA-Public Use
  Company Number: PHHY2008CA29317

PATIENT
  Sex: Female

DRUGS (1)
  1. SANDOSTATIN LAR [Suspect]
     Indication: BRONCHIAL CARCINOMA
     Dosage: 30 mg, OT
     Route: 030
     Dates: start: 20080101, end: 20081121

REACTIONS (6)
  - General physical health deterioration [Unknown]
  - Blood pressure inadequately controlled [Unknown]
  - Blood creatinine increased [Unknown]
  - Pain [Unknown]
  - Cough [Unknown]
  - Nasopharyngitis [Unknown]
